FAERS Safety Report 17609409 (Version 1)
Quarter: 2020Q2

REPORT INFORMATION
  Report Type: Report from Study
  Country: US (occurrence: US)
  Receive Date: 20200401
  Receipt Date: 20200401
  Transmission Date: 20200713
  Serious: Yes (Other)
  Sender: FDA-Public Use
  Company Number: NVSC2020US086455

PATIENT
  Sex: Male

DRUGS (1)
  1. AFINITOR DISPERZ [Suspect]
     Active Substance: EVEROLIMUS
     Indication: TUBEROUS SCLEROSIS COMPLEX
     Dosage: 2 MG, QD
     Route: 048
     Dates: start: 20190307, end: 20190317

REACTIONS (5)
  - Screaming [Recovered/Resolved]
  - Stomatitis [Recovered/Resolved]
  - Eating disorder [Recovered/Resolved]
  - Oropharyngeal blistering [Recovered/Resolved]
  - Tongue discomfort [Recovered/Resolved]
